FAERS Safety Report 13348891 (Version 1)
Quarter: 2017Q1

REPORT INFORMATION
  Report Type: Spontaneous
  Country: US (occurrence: US)
  Receive Date: 20170320
  Receipt Date: 20170320
  Transmission Date: 20170428
  Serious: Yes (Other)
  Sender: FDA-Public Use
  Company Number: US-009507513-1703USA005965

PATIENT
  Age: 57 Year
  Sex: Male

DRUGS (4)
  1. PLATINUM [Suspect]
     Active Substance: PLATINUM
  2. LONSURF [Suspect]
     Active Substance: TIPIRACIL HYDROCHLORIDE\TRIFLURIDINE
     Indication: NEOPLASM MALIGNANT
     Dosage: 60 MG, BID
     Route: 048
     Dates: start: 20161126, end: 201701
  3. INTRON A [Suspect]
     Active Substance: INTERFERON ALFA-2B
     Indication: NEOPLASM MALIGNANT
     Dosage: 300000 IU, 3 IN 1 WEEK
     Route: 058
     Dates: start: 20160930
  4. PRINIVIL [Concomitant]
     Active Substance: LISINOPRIL

REACTIONS (6)
  - Insomnia [Unknown]
  - Polyuria [Unknown]
  - Hallucination [Unknown]
  - Constipation [Unknown]
  - Haematochezia [Unknown]
  - Bedridden [Recovering/Resolving]

NARRATIVE: CASE EVENT DATE: 201701
